FAERS Safety Report 24527612 (Version 1)
Quarter: 2024Q4

REPORT INFORMATION
  Report Type: Spontaneous
  Country: CN (occurrence: CN)
  Receive Date: 20241021
  Receipt Date: 20241021
  Transmission Date: 20250115
  Serious: Yes (Other)
  Sender: ALEXION PHARMACEUTICALS
  Company Number: CN-ASTRAZENECA-202410CHN006133CN

PATIENT
  Age: 48 Year
  Weight: 55 kg

DRUGS (4)
  1. NEXIUM [Suspect]
     Active Substance: ESOMEPRAZOLE MAGNESIUM
     Dosage: 2 DOSAGE FORM, BID
  2. BISMUTH SUBCITRATE [Concomitant]
     Active Substance: BISMUTH SUBCITRATE
     Indication: Helicobacter infection
     Dosage: 2 DOSAGE FORM, BID
  3. CLARITHROMYCIN [Concomitant]
     Active Substance: CLARITHROMYCIN
     Indication: Helicobacter infection
     Dosage: 2 DOSAGE FORM, BID
  4. AMOXICILLIN [Concomitant]
     Active Substance: AMOXICILLIN
     Indication: Helicobacter infection
     Dosage: 4 DOSAGE FORM, BID

REACTIONS (1)
  - Liver injury [Recovering/Resolving]
